FAERS Safety Report 10443243 (Version 2)
Quarter: 2014Q4

REPORT INFORMATION
  Report Type: Not Available
  Country: IN (occurrence: IN)
  Receive Date: 20140910
  Receipt Date: 20141008
  Transmission Date: 20150528
  Serious: No
  Sender: FDA-Public Use
  Company Number: IN-LUPIN PHARMACEUTICALS INC.-2014-01575

PATIENT
  Age: 66 Year
  Sex: Male

DRUGS (2)
  1. PANTOCID [Concomitant]
     Indication: PRODUCT USED FOR UNKNOWN INDICATION
     Route: 065
     Dates: start: 20131101
  2. R-CINEX [Suspect]
     Active Substance: ISONIAZID\RIFAMPIN
     Indication: BONE TUBERCULOSIS
     Route: 048
     Dates: start: 20131101

REACTIONS (2)
  - Abdominal pain upper [Not Recovered/Not Resolved]
  - Vomiting [Not Recovered/Not Resolved]

NARRATIVE: CASE EVENT DATE: 201311
